FAERS Safety Report 4432882-1 (Version None)
Quarter: 2004Q3

REPORT INFORMATION
  Report Type: 
  Country: None (occurrence: None)
  Receive Date: 20040726
  Receipt Date: 20040402
  Transmission Date: 20050211
  Serious: No
  Sender: FDA-Public Use
  Company Number: USA040362660

PATIENT
  Age: 63 Year
  Sex: Male

DRUGS (2)
  1. FORTEO [Suspect]
     Indication: OSTEOPOROSIS
     Dates: start: 20040316
  2. DURAGESIC [Concomitant]

REACTIONS (4)
  - BACK PAIN [None]
  - BURNING SENSATION [None]
  - NAUSEA [None]
  - VOMITING [None]
